FAERS Safety Report 8124070-2 (Version None)
Quarter: 2012Q1

REPORT INFORMATION
  Report Type: 
  Country: None (occurrence: None)
  Receive Date: 20120209
  Receipt Date: 20120207
  Transmission Date: 20120608
  Serious: No
  Sender: FDA-Public Use
  Company Number: US-PFIZER INC-2012023527

PATIENT
  Sex: Male
  Weight: 70.748 kg

DRUGS (6)
  1. CHANTIX [Suspect]
     Indication: SMOKING CESSATION THERAPY
     Dosage: 0.5 MG, 1X/DAY
     Route: 048
     Dates: start: 20111212
  2. VICODIN [Concomitant]
     Dosage: UNK
  3. CHANTIX [Suspect]
     Dosage: UNK
     Route: 048
     Dates: start: 20111201
  4. CHANTIX [Suspect]
     Dosage: 1 MG, 2X/DAY
     Route: 048
     Dates: start: 20120101, end: 20120205
  5. CELEXA [Concomitant]
     Dosage: UNK
  6. ALPRAZOLAM [Concomitant]
     Indication: ANXIETY
     Dosage: UNK

REACTIONS (9)
  - ABNORMAL DREAMS [None]
  - DRUG INEFFECTIVE [None]
  - RASH PRURITIC [None]
  - NAUSEA [None]
  - FEELING ABNORMAL [None]
  - FRUSTRATION [None]
  - THERAPEUTIC RESPONSE UNEXPECTED [None]
  - ANXIETY [None]
  - VOMITING [None]
